FAERS Safety Report 25586743 (Version 1)
Quarter: 2025Q3

REPORT INFORMATION
  Report Type: Spontaneous
  Country: US (occurrence: None)
  Receive Date: 20250720
  Receipt Date: 20250720
  Transmission Date: 20251021
  Serious: No
  Sender: FDA-CTU
  Company Number: None

PATIENT
  Age: 42 Year
  Sex: Female
  Weight: 126 kg

DRUGS (1)
  1. ZEPBOUND [Suspect]
     Active Substance: TIRZEPATIDE
     Indication: Weight decreased
     Route: 058
     Dates: start: 20250719

REACTIONS (2)
  - Lymph node pain [None]
  - Allodynia [None]

NARRATIVE: CASE EVENT DATE: 20250720
